FAERS Safety Report 16601727 (Version 4)
Quarter: 2019Q4

REPORT INFORMATION
  Report Type: Spontaneous
  Country: DE (occurrence: DE)
  Receive Date: 20190719
  Receipt Date: 20191112
  Transmission Date: 20200122
  Serious: Yes (Death, Hospitalization, Other)
  Sender: FDA-Public Use
  Company Number: DE-GLAXOSMITHKLINE-DE2019EME129655

PATIENT

DRUGS (2)
  1. RIVASTIGMIN [Suspect]
     Active Substance: RIVASTIGMINE
     Indication: PRODUCT USED FOR UNKNOWN INDICATION
     Dosage: UNK
  2. SCOPODERM TTS [Suspect]
     Active Substance: SCOPOLAMINE
     Indication: SALIVARY HYPERSECRETION
     Dosage: UNK

REACTIONS (6)
  - Multiple organ dysfunction syndrome [Fatal]
  - Drug interaction [Unknown]
  - Confusional state [Unknown]
  - Agitation [Unknown]
  - Condition aggravated [Unknown]
  - Product use in unapproved indication [Unknown]
